FAERS Safety Report 6135134-7 (Version None)
Quarter: 2009Q1

REPORT INFORMATION
  Report Type: 
  Country: None (occurrence: None)
  Receive Date: 20090327
  Receipt Date: 20090319
  Transmission Date: 20090719
  Serious: Yes (Hospitalization, Disabling, Other)
  Sender: FDA-Public Use
  Company Number: US-MERCK-0812USA05214

PATIENT
  Age: 63 Year
  Sex: Female

DRUGS (2)
  1. FOSAMAX [Suspect]
     Indication: OSTEOPOROSIS
     Route: 048
     Dates: end: 20070701
  2. FOSAMAX [Suspect]
     Route: 048
     Dates: start: 19950101

REACTIONS (22)
  - ANGIOPATHY [None]
  - APHTHOUS STOMATITIS [None]
  - ARTHROPATHY [None]
  - BLISTER [None]
  - DEEP VEIN THROMBOSIS [None]
  - DIABETES MELLITUS [None]
  - DYSPHONIA [None]
  - EXOSTOSIS [None]
  - HAEMORRHAGE [None]
  - HAEMORRHAGIC ANAEMIA [None]
  - HYPOAESTHESIA ORAL [None]
  - IMPAIRED HEALING [None]
  - JAW DISORDER [None]
  - ORAL DISCOMFORT [None]
  - ORAL HERPES [None]
  - ORAL TORUS [None]
  - OSTEONECROSIS [None]
  - PHARYNGEAL ERYTHEMA [None]
  - STAPHYLOCOCCAL INFECTION [None]
  - STOMATITIS [None]
  - TONGUE DISORDER [None]
  - TOOTH DISORDER [None]
